FAERS Safety Report 8496534 (Version 2)
Quarter: 2013Q2

REPORT INFORMATION
  Report Type: Spontaneous
  Country: CN (occurrence: None)
  Receive Date: 20120330
  Receipt Date: 20130409
  Transmission Date: 20140414
  Serious: Yes (Other)
  Sender: FDA-Public Use
  Company Number: VAL_00723_2012

PATIENT
  Sex: Female

DRUGS (1)
  1. ROCALTROL [Suspect]
     Indication: OSTEOPOROSIS
     Dosage: (0.25 UG QD ORAL), (0.25 UG BID ORAL)
     Route: 048
     Dates: start: 201202

REACTIONS (1)
  - Blood calcium decreased [None]
